FAERS Safety Report 6767758-8 (Version None)
Quarter: 2010Q2

REPORT INFORMATION
  Report Type: 
  Country: None (occurrence: None)
  Receive Date: 20100614
  Receipt Date: 20100602
  Transmission Date: 20101027
  Serious: Yes (Death)
  Sender: FDA-Public Use
  Company Number: CO-ROCHE-707015

PATIENT
  Sex: Male

DRUGS (1)
  1. XELODA [Suspect]
     Dosage: FORM: NOT PROVIDED.
     Route: 048
     Dates: start: 20100428, end: 20100527

REACTIONS (1)
  - DISEASE PROGRESSION [None]
